FAERS Safety Report 8317993-2 (Version None)
Quarter: 2012Q2

REPORT INFORMATION
  Report Type: 
  Country: None (occurrence: None)
  Receive Date: 20120427
  Receipt Date: 20120423
  Transmission Date: 20120825
  Serious: Yes (Other)
  Sender: FDA-Public Use
  Company Number: ES-ABBOTT-12P-144-0926245-00

PATIENT
  Age: 38 Year
  Sex: Male

DRUGS (3)
  1. CORTICOIDS [Concomitant]
     Indication: PRODUCT USED FOR UNKNOWN INDICATION
  2. ADALIMUMAB [Suspect]
     Indication: CROHN'S DISEASE
  3. AZATHIOPRINE [Concomitant]
     Indication: PRODUCT USED FOR UNKNOWN INDICATION

REACTIONS (2)
  - IMMUNE RECONSTITUTION SYNDROME [None]
  - DISSEMINATED TUBERCULOSIS [None]
